FAERS Safety Report 9298872 (Version 2)
Quarter: 2013Q2

REPORT INFORMATION
  Report Type: Spontaneous
  Country: IL (occurrence: None)
  Receive Date: 20130515
  Receipt Date: 20130530
  Transmission Date: 20140414
  Serious: Yes (Other)
  Sender: FDA-Public Use
  Company Number: 2013-1960

PATIENT
  Age: 67 Year
  Sex: Female

DRUGS (5)
  1. SOMATULINE [Suspect]
     Indication: CARCINOID TUMOUR
     Dosage: 120 MG (120 MG, 1 IN 28 D), SUBCUTANEOUS
     Route: 058
     Dates: start: 20120930
  2. OMEPRAZOLE (OMEPRAZOLE) [Concomitant]
  3. EUTHROX (LEVOTHYROXINE SODIUM) [Concomitant]
  4. LERCANIDIPINE HYDROCHLORIDE (LERCANIDIPINTE HYDROCHLORIDE) [Concomitant]
  5. NORMITEN (ATENOLOL) [Concomitant]

REACTIONS (4)
  - Carcinoid tumour [None]
  - Malignant neoplasm progression [None]
  - Metastases to liver [None]
  - Metastases to bone marrow [None]
